FAERS Safety Report 9742937 (Version 2)
Quarter: 2013Q4

REPORT INFORMATION
  Report Type: Report from Study
  Country: CA (occurrence: CA)
  Receive Date: 20131210
  Receipt Date: 20131210
  Transmission Date: 20140711
  Serious: Yes (Other)
  Sender: FDA-Public Use
  Company Number: CA-ABBVIE-12P-028-0962038-00

PATIENT
  Sex: Female

DRUGS (1)
  1. HUMIRA 40 MG/0.8 ML PEN [Suspect]
     Indication: CROHN^S DISEASE
     Route: 058
     Dates: start: 20081114

REACTIONS (4)
  - Intestinal obstruction [Recovered/Resolved]
  - Colostomy [Unknown]
  - Crohn^s disease [Recovering/Resolving]
  - Intestinal resection [Unknown]
